FAERS Safety Report 7043990-3 (Version None)
Quarter: 2010Q4

REPORT INFORMATION
  Report Type: 
  Country: None (occurrence: None)
  Receive Date: 20101012
  Receipt Date: 20101012
  Transmission Date: 20110411
  Serious: Yes (Other)
  Sender: FDA-Public Use
  Company Number: None

PATIENT
  Age: 48 Year
  Sex: Male
  Weight: 97.5234 kg

DRUGS (1)
  1. ZYRTEC [Suspect]
     Indication: HYPERSENSITIVITY
     Dosage: ONE DAILY PO
     Route: 048
     Dates: start: 20010101, end: 20101002

REACTIONS (2)
  - DRUG WITHDRAWAL SYNDROME [None]
  - PRURITUS GENERALISED [None]
